FAERS Safety Report 4447574-2 (Version None)
Quarter: 2004Q3

REPORT INFORMATION
  Report Type: 
  Country: None (occurrence: None)
  Receive Date: 20040823
  Receipt Date: 20040706
  Transmission Date: 20050211
  Serious: No
  Sender: FDA-Public Use
  Company Number: PHEH2004US06542

PATIENT
  Age: 72 Year
  Sex: Female

DRUGS (9)
  1. ZELNORM [Suspect]
     Indication: ERUCTATION
     Dosage: 6 MG, BID, ORAL
     Route: 048
     Dates: start: 20040201, end: 20040601
  2. COLACE [Concomitant]
  3. NEXIUM [Concomitant]
  4. ASPIRIN [Concomitant]
  5. CELEBREX [Concomitant]
  6. ZOLOFT [Concomitant]
  7. FLONASE [Concomitant]
  8. COUMADIN [Concomitant]
  9. MIACALCIN [Concomitant]

REACTIONS (1)
  - DRUG INEFFECTIVE FOR UNAPPROVED INDICATION [None]
